FAERS Safety Report 9471636 (Version 1)
Quarter: 2013Q3

REPORT INFORMATION
  Report Type: Spontaneous
  Country: SZ (occurrence: None)
  Receive Date: 20130819
  Receipt Date: 20130819
  Transmission Date: 20140515
  Serious: Yes (Hospitalization)
  Sender: FDA-Public Use
  Company Number: DSM-2013-00749

PATIENT
  Age: 59 Year
  Sex: Male

DRUGS (4)
  1. OLMETEC PLUS (HYDROCHLOROTHIAZIDE, OLMESARTAN MEDOXOMIL) (TABLET) (HYDROCHLOROTHIAZIDE, OLMESARTAN MEDOXOMIL) [Suspect]
     Indication: HYPERTENSION
     Dosage: 1 IN 1 D
     Route: 048
  2. OMEZOLE MEPHA [Suspect]
     Indication: BARRETT^S OESOPHAGUS
     Dosage: 1 IN 1 D
     Route: 048
  3. CIPRALEX (ESCITALOPRAM) (ESCITALOPRAM) [Concomitant]
  4. QUETIAPINE FUMARATE (QUETIAPINE FUMARATE0 (QUETIAPINE FUMARATE) [Concomitant]

REACTIONS (6)
  - Dizziness postural [None]
  - Fatigue [None]
  - Decreased appetite [None]
  - Renal failure acute [None]
  - Tubulointerstitial nephritis [None]
  - Renal tubular disorder [None]
